FAERS Safety Report 18905940 (Version 5)
Quarter: 2021Q4

REPORT INFORMATION
  Report Type: Report from Study
  Country: US (occurrence: US)
  Receive Date: 20210217
  Receipt Date: 20211025
  Transmission Date: 20220303
  Serious: Yes (Other)
  Sender: FDA-Public Use
  Company Number: US-SEATTLE GENETICS-2020SGN04685

PATIENT
  Sex: Female

DRUGS (8)
  1. TUCATINIB [Suspect]
     Active Substance: TUCATINIB
     Indication: Breast cancer female
     Dosage: UNK
  2. TUCATINIB [Suspect]
     Active Substance: TUCATINIB
     Dosage: UNK
  3. TUCATINIB [Suspect]
     Active Substance: TUCATINIB
     Dosage: UNK
  4. TUCATINIB [Suspect]
     Active Substance: TUCATINIB
     Dosage: UNK
  5. TUCATINIB [Suspect]
     Active Substance: TUCATINIB
     Dosage: UNK
  6. TUCATINIB [Suspect]
     Active Substance: TUCATINIB
     Dosage: UNK
  7. XELODA [Suspect]
     Active Substance: CAPECITABINE
     Indication: Breast cancer female
  8. HERCEPTIN [Suspect]
     Active Substance: TRASTUZUMAB
     Indication: Breast cancer female

REACTIONS (18)
  - Brain operation [Unknown]
  - Thrombosis [Unknown]
  - Cardiovascular disorder [Unknown]
  - Hypoaesthesia [Unknown]
  - Anal incontinence [Unknown]
  - Urinary incontinence [Unknown]
  - Paraesthesia [Unknown]
  - Rhinorrhoea [Unknown]
  - Sneezing [Unknown]
  - Cough [Unknown]
  - Tremor [Unknown]
  - Product dose omission issue [Unknown]
  - Skin irritation [Unknown]
  - Dry skin [Unknown]
  - Skin abrasion [Unknown]
  - Fatigue [Unknown]
  - Erythema [Unknown]
  - Diarrhoea [Unknown]
